FAERS Safety Report 19205700 (Version 1)
Quarter: 2021Q2

REPORT INFORMATION
  Report Type: Spontaneous
  Country: US (occurrence: US)
  Receive Date: 20210503
  Receipt Date: 20210503
  Transmission Date: 20210717
  Serious: No
  Sender: FDA-Public Use
  Company Number: US-FARMAPROD-202102-0239

PATIENT
  Sex: Male

DRUGS (25)
  1. OXERVATE [Suspect]
     Active Substance: CENEGERMIN-BKBJ
     Route: 047
     Dates: start: 20210209
  2. PANTOPRAZOLE SODIUM. [Concomitant]
     Active Substance: PANTOPRAZOLE SODIUM
  3. ZYRTEC [Concomitant]
     Active Substance: CETIRIZINE HYDROCHLORIDE
  4. VITAMIN B COMPLEX [Concomitant]
     Active Substance: CYANOCOBALAMIN\DEXPANTHENOL\NIACINAMIDE\PYRIDOXINE HYDROCHLORIDE\RIBOFLAVIN 5^-PHOSPHATE SODIUM\THIAMINE HYDROCHLORIDE\VITAMIN B COMPLEX
  5. DOXYCYCLINE HYCLATE. [Concomitant]
     Active Substance: DOXYCYCLINE HYCLATE
  6. ATORVASTATIN CALCIUM. [Concomitant]
     Active Substance: ATORVASTATIN CALCIUM
  7. PHENOBARBITAL. [Concomitant]
     Active Substance: PHENOBARBITAL
  8. VITAMINE C [Concomitant]
     Active Substance: ASCORBIC ACID
  9. FISH OIL [Concomitant]
     Active Substance: FISH OIL
     Dosage: 100?150 MG
  10. ESCITALOPRAM OXALATE. [Concomitant]
     Active Substance: ESCITALOPRAM OXALATE
  11. SUCRALFATE. [Concomitant]
     Active Substance: SUCRALFATE
  12. BRIMONIDINE TARTRATE. [Concomitant]
     Active Substance: BRIMONIDINE TARTRATE
  13. GARLIC. [Concomitant]
     Active Substance: GARLIC
  14. MULTIVITAMIN [Concomitant]
     Active Substance: VITAMINS
  15. DILANTIN [Concomitant]
     Active Substance: PHENYTOIN
  16. DIVALPROEX SODIUM. [Concomitant]
     Active Substance: DIVALPROEX SODIUM
  17. LEVOBUNOLOL HCL [Concomitant]
     Active Substance: LEVOBUNOLOL HYDROCHLORIDE
  18. LATANOPROST. [Concomitant]
     Active Substance: LATANOPROST
  19. ECOTRIN [Concomitant]
     Active Substance: ASPIRIN
  20. BUDESONIDE. [Concomitant]
     Active Substance: BUDESONIDE
     Dosage: 0.25 MG/2 ML AMPUL/NEBULIZATOR
  21. OXERVATE [Suspect]
     Active Substance: CENEGERMIN-BKBJ
     Indication: NEUROTROPHIC KERATOPATHY
     Route: 047
     Dates: start: 20201203, end: 20210127
  22. SYSTANE (HYPROMELLOSE 2910 (4000 MPA.S)) [Concomitant]
     Active Substance: HYPROMELLOSE 2910 (4000 MPA.S)
     Dosage: 0.3%?0.4%
  23. DUREZOL [Concomitant]
     Active Substance: DIFLUPREDNATE
  24. CALCIUM [Concomitant]
     Active Substance: CALCIUM
     Dosage: 250?12.5 MG
  25. ELIQUIS [Concomitant]
     Active Substance: APIXABAN

REACTIONS (3)
  - Eye pain [Recovering/Resolving]
  - Ocular hyperaemia [Unknown]
  - Off label use [Unknown]
